FAERS Safety Report 7858486-6 (Version None)
Quarter: 2011Q4

REPORT INFORMATION
  Report Type: 
  Country: None (occurrence: None)
  Receive Date: 20111027
  Receipt Date: 20111018
  Transmission Date: 20120403
  Serious: Yes (Other)
  Sender: FDA-Public Use
  Company Number: US-JNJFOC-20110702788

PATIENT
  Sex: Male
  Weight: 108.86 kg

DRUGS (3)
  1. LYRICA [Suspect]
     Indication: NEUROPATHY PERIPHERAL
     Route: 065
  2. DURAGESIC-100 [Suspect]
     Indication: NEURALGIA
     Route: 062
     Dates: start: 20060101
  3. PHENELZINE [Concomitant]
     Indication: MENTAL DISORDER
     Route: 048
     Dates: start: 19880101

REACTIONS (4)
  - INCORRECT DRUG ADMINISTRATION DURATION [None]
  - NEUROPATHY PERIPHERAL [None]
  - VERTIGO [None]
  - PRODUCT ADHESION ISSUE [None]
